FAERS Safety Report 9105690 (Version 1)
Quarter: 2013Q1

REPORT INFORMATION
  Report Type: Spontaneous
  Country: US (occurrence: US)
  Receive Date: 20130221
  Receipt Date: 20130221
  Transmission Date: 20140127
  Serious: Yes (Hospitalization)
  Sender: FDA-Public Use
  Company Number: US-GLAXOSMITHKLINE-A1013071A

PATIENT
  Age: 61 Year
  Sex: Female

DRUGS (3)
  1. ADVAIR [Suspect]
     Indication: PRODUCT USED FOR UNKNOWN INDICATION
     Route: 055
     Dates: start: 20120312
  2. ARIXTRA [Suspect]
     Indication: PRODUCT USED FOR UNKNOWN INDICATION
     Dosage: 2.5MG UNKNOWN
     Route: 058
  3. CONCURRENT MEDICATIONS [Concomitant]

REACTIONS (1)
  - Orthopaedic procedure [Not Recovered/Not Resolved]
